FAERS Safety Report 12053606 (Version 1)
Quarter: 2016Q1

REPORT INFORMATION
  Report Type: Report from Study
  Country: US (occurrence: US)
  Receive Date: 20160209
  Receipt Date: 20160209
  Transmission Date: 20160526
  Serious: No
  Sender: FDA-Public Use
  Company Number: US-ABBVIE-15P-163-1456572-00

PATIENT
  Sex: Female
  Weight: 88.08 kg

DRUGS (3)
  1. HUMIRA [Suspect]
     Active Substance: ADALIMUMAB
     Route: 065
     Dates: start: 201401
  2. HUMIRA [Suspect]
     Active Substance: ADALIMUMAB
     Indication: PSORIASIS
     Route: 065
     Dates: start: 201401, end: 201401
  3. SYNTHROID [Concomitant]
     Active Substance: LEVOTHYROXINE SODIUM
     Indication: HYPOTHYROIDISM

REACTIONS (5)
  - Injection site warmth [Not Recovered/Not Resolved]
  - Injection site mass [Not Recovered/Not Resolved]
  - Injection site erythema [Not Recovered/Not Resolved]
  - Injection site papule [Not Recovered/Not Resolved]
  - Injection site pruritus [Not Recovered/Not Resolved]
